FAERS Safety Report 12218299 (Version 1)
Quarter: 2016Q1

REPORT INFORMATION
  Report Type: Report from Study
  Country: US (occurrence: US)
  Receive Date: 20160329
  Receipt Date: 20160329
  Transmission Date: 20160526
  Serious: Yes (Death)
  Sender: FDA-Public Use
  Company Number: US-APOPHARMA USA, INC.-2016AP007308

PATIENT

DRUGS (1)
  1. DEFERIPRONE [Suspect]
     Active Substance: DEFERIPRONE
     Indication: HAEMOCHROMATOSIS
     Dosage: 22 MG/KG, TID
     Route: 048
     Dates: start: 20160222, end: 20160317

REACTIONS (1)
  - Death [Fatal]

NARRATIVE: CASE EVENT DATE: 20160317
